FAERS Safety Report 6676800-4 (Version None)
Quarter: 2010Q2

REPORT INFORMATION
  Report Type: 
  Country: None (occurrence: None)
  Receive Date: 20100409
  Receipt Date: 20100409
  Transmission Date: 20101027
  Serious: No
  Sender: FDA-Public Use
  Company Number: None

PATIENT
  Age: 69 Year
  Sex: Female
  Weight: 64.8644 kg

DRUGS (2)
  1. XIFAXAN [Suspect]
     Indication: CONSTIPATION
     Dosage: 2 TABS, 3 TIMES A DAY TIL GONE
     Dates: start: 20100310, end: 20100320
  2. XIFAXAN [Suspect]
     Indication: FLATULENCE
     Dosage: 2 TABS, 3 TIMES A DAY TIL GONE
     Dates: start: 20100310, end: 20100320

REACTIONS (3)
  - ANORECTAL INFECTION [None]
  - FUNGAL INFECTION [None]
  - VULVOVAGINAL MYCOTIC INFECTION [None]
